FAERS Safety Report 8163603-7 (Version None)
Quarter: 2012Q1

REPORT INFORMATION
  Report Type: 
  Country: None (occurrence: None)
  Receive Date: 20120224
  Receipt Date: 20120217
  Transmission Date: 20120608
  Serious: Yes (Hospitalization, Other)
  Sender: FDA-Public Use
  Company Number: FR-PFIZER INC-2012042740

PATIENT
  Age: 67 Year
  Sex: Female

DRUGS (9)
  1. AMLODIPINE BESYLATE [Suspect]
     Indication: HYPERTENSION
     Dosage: 5 MG, 2X/DAY
     Route: 048
     Dates: end: 20120118
  2. AMITRIPTYLINE HCL [Concomitant]
     Dosage: 10 DROPS DAILY
  3. EFFEXOR XR [Suspect]
     Dosage: 75 MG, 1X/DAY
     Route: 048
     Dates: end: 20120118
  4. RAMIPRIL [Suspect]
     Indication: HYPERTENSION
     Dosage: 5 MG, 1X/DAY
     Route: 048
     Dates: end: 20120118
  5. TENORMIN [Suspect]
     Indication: HYPERTENSION
     Dosage: 100 MG, 1X/DAY
     Route: 048
     Dates: end: 20120118
  6. NEXIUM [Concomitant]
     Dosage: 40 MG, 2X/DAY
  7. DUPHALAC [Concomitant]
     Dosage: 1 SACHET, 3X/DAY
  8. CEFEPIME HYDROCHLORIDE [Suspect]
     Dosage: 2 G, 2X/DAY
     Route: 042
     Dates: start: 20120104, end: 20120116
  9. ASPEGIC 1000 [Concomitant]
     Dosage: 75 MG, DAILY

REACTIONS (8)
  - DEPRESSED LEVEL OF CONSCIOUSNESS [None]
  - HYPOTENSION [None]
  - RENAL FAILURE ACUTE [None]
  - RED BLOOD CELL COUNT DECREASED [None]
  - CHOLECYSTECTOMY [None]
  - DISTURBANCE IN ATTENTION [None]
  - SEPTIC SHOCK [None]
  - FALL [None]
